FAERS Safety Report 5074566-5 (Version None)
Quarter: 2006Q3

REPORT INFORMATION
  Report Type: 
  Country: None (occurrence: None)
  Receive Date: 20060808
  Receipt Date: 20050804
  Transmission Date: 20061208
  Serious: No
  Sender: FDA-Public Use
  Company Number: US-AMGEN-KDL145592

PATIENT
  Age: 64 Year
  Sex: Male

DRUGS (2)
  1. PROCRIT [Suspect]
     Indication: MYELODYSPLASTIC SYNDROME
     Route: 058
     Dates: start: 20041201
  2. BLOOD CELLS, PACKED HUMAN [Concomitant]

REACTIONS (2)
  - BACK PAIN [None]
  - MUSCULOSKELETAL PAIN [None]
